FAERS Safety Report 24573061 (Version 1)
Quarter: 2024Q4

REPORT INFORMATION
  Report Type: Spontaneous
  Country: US (occurrence: US)
  Receive Date: 20241101
  Receipt Date: 20241101
  Transmission Date: 20250115
  Serious: No
  Sender: BIOMARIN
  Company Number: US-BIOMARINAP-US-2024-161476

PATIENT

DRUGS (1)
  1. PALYNZIQ [Suspect]
     Active Substance: PEGVALIASE-PQPZ
     Indication: Phenylketonuria
     Dosage: 2.5, UNK, QW
     Route: 058
     Dates: start: 20241010

REACTIONS (2)
  - Contusion [Unknown]
  - Swelling [Unknown]

NARRATIVE: CASE EVENT DATE: 20241027
